FAERS Safety Report 8866161 (Version 1)
Quarter: 2012Q4

REPORT INFORMATION
  Report Type: 
  Country: US (occurrence: US)
  Receive Date: 20121025
  Receipt Date: 20121025
  Transmission Date: 20130627
  Serious: Yes (Other)
  Sender: FDA-Public Use
  Company Number: US-TEVA-366135USA

PATIENT
  Age: 54 Year
  Sex: Female
  Weight: 45.4 kg

DRUGS (3)
  1. PROVIGIL [Suspect]
     Indication: FABRY^S DISEASE
     Route: 048
     Dates: start: 201109
  2. VICODIN [Concomitant]
     Indication: PAIN
     Dosage: QID/PRN
     Route: 048
     Dates: start: 20070201
  3. ALLEGRA [Concomitant]
     Indication: HYPERSENSITIVITY
     Dosage: 180 Milligram Daily;
     Route: 048

REACTIONS (10)
  - Loss of consciousness [Recovered/Resolved]
  - Road traffic accident [Recovered/Resolved with Sequelae]
  - Urinary incontinence [Recovered/Resolved]
  - Rib fracture [Recovering/Resolving]
  - Fibula fracture [Recovering/Resolving]
  - Chemical poisoning [Unknown]
  - Mental status changes [Unknown]
  - Dyspnoea [Recovered/Resolved]
  - Off label use [Unknown]
  - Incorrect dose administered [Unknown]
